FAERS Safety Report 6334803-3 (Version None)
Quarter: 2009Q3

REPORT INFORMATION
  Report Type: 
  Country: None (occurrence: None)
  Receive Date: 20090826
  Receipt Date: 20090817
  Transmission Date: 20100115
  Serious: Yes (Other)
  Sender: FDA-Public Use
  Company Number: TRP_06380_2009

PATIENT
  Sex: Female

DRUGS (5)
  1. RIBASPHERE [Suspect]
     Indication: HEPATITIS C
     Dosage: (1000 MG, DAILY)
     Dates: start: 20090506
  2. PEGASYS [Suspect]
     Indication: HEPATITIS C
     Dosage: (180 ?G 1X/WEEK)
     Dates: start: 20090506
  3. ABILIFY [Concomitant]
  4. DEPO PROVERA /00115201/ [Concomitant]
  5. CELEXA [Concomitant]

REACTIONS (5)
  - ANXIETY [None]
  - MASS [None]
  - OEDEMA PERIPHERAL [None]
  - PAIN IN EXTREMITY [None]
  - VOMITING [None]
